FAERS Safety Report 9836638 (Version 1)
Quarter: 2013Q4

REPORT INFORMATION
  Report Type: Spontaneous
  Country: US (occurrence: None)
  Receive Date: 20131121
  Receipt Date: 20131121
  Transmission Date: 20140711
  Serious: Yes (Other)
  Sender: FDA-Public Use
  Company Number: 1000047455

PATIENT
  Age: 86 Year
  Sex: Male

DRUGS (10)
  1. TUDORZA PRESSAIR [Suspect]
     Indication: DYSPHONIA
     Dosage: 400 MCG, 1 IN 1 D
     Route: 055
     Dates: start: 20130719
  2. ROSUVASTATIN [Concomitant]
  3. CARVEDILOL [Concomitant]
  4. DILTIAZEM [Concomitant]
  5. OMEPRAZOLE [Concomitant]
  6. GABAPENTIN [Concomitant]
  7. MELOXICAM [Concomitant]
  8. SYMBICORT [Concomitant]
  9. NASONEX [Concomitant]
  10. LEVOTHYROXINE [Concomitant]

REACTIONS (2)
  - Blood pressure decreased [None]
  - Off label use [None]
